FAERS Safety Report 5469740-X (Version None)
Quarter: 2007Q3

REPORT INFORMATION
  Report Type: 
  Country: None (occurrence: None)
  Receive Date: 20070926
  Receipt Date: 20070926
  Transmission Date: 20080115
  Serious: Yes (Hospitalization)
  Sender: FDA-Public Use
  Company Number: None

PATIENT
  Sex: Female
  Weight: 62 kg

DRUGS (1)
  1. TOPOTECAN [Suspect]
     Dosage: 18 MG

REACTIONS (4)
  - ANAEMIA [None]
  - ESCHERICHIA INFECTION [None]
  - KIDNEY INFECTION [None]
  - URINARY TRACT INFECTION [None]
